FAERS Safety Report 6782843-2 (Version None)
Quarter: 2010Q2

REPORT INFORMATION
  Report Type: 
  Country: None (occurrence: None)
  Receive Date: 20100617
  Receipt Date: 20100603
  Transmission Date: 20101027
  Serious: Yes (Other)
  Sender: FDA-Public Use
  Company Number: 2010US001964

PATIENT
  Age: 4 Year
  Sex: Male
  Weight: 19 kg

DRUGS (8)
  1. PROGRAF [Suspect]
     Indication: LIVER TRANSPLANT
  2. PROGRAF [Suspect]
     Indication: RENAL TRANSPLANT
  3. DACLIZUMAB (DACLIZUMAB) [Concomitant]
  4. CORTICOSTEROID NOS (CORTICOSTEROID NOS) [Concomitant]
  5. MYCOPHENOLATE MOFETIL [Concomitant]
  6. ENOXAPARIN SODIUM [Concomitant]
  7. ASPIRIN [Concomitant]
  8. VITAMIN K (VITAMIN K NOS) [Concomitant]

REACTIONS (7)
  - ASCITES [None]
  - HYPERTENSION [None]
  - HYPOTENSION [None]
  - LIVER TRANSPLANT REJECTION [None]
  - PERICARDIAL EFFUSION [None]
  - PLEURAL EFFUSION [None]
  - SPLENOMEGALY [None]
